FAERS Safety Report 8374106-9 (Version None)
Quarter: 2012Q2

REPORT INFORMATION
  Report Type: 
  Country: None (occurrence: None)
  Receive Date: 20120518
  Receipt Date: 20120518
  Transmission Date: 20120825
  Serious: Yes (Hospitalization, Disabling)
  Sender: FDA-Public Use
  Company Number: None

PATIENT
  Age: 51 Year
  Sex: Male
  Weight: 79 kg

DRUGS (5)
  1. METFORMIN HCL [Concomitant]
  2. BENICAR [Concomitant]
  3. METOPROLOL TARTRATE [Concomitant]
  4. LOTEMAX [Concomitant]
  5. BYETTA [Suspect]
     Indication: TYPE 2 DIABETES MELLITUS
     Dosage: 10 MCG TWICE DAILY SQ
     Route: 058
     Dates: start: 20091122, end: 20120325

REACTIONS (3)
  - DYSPNOEA [None]
  - RENAL FUNCTION TEST ABNORMAL [None]
  - NEPHROTIC SYNDROME [None]
